FAERS Safety Report 4624036-0 (Version None)
Quarter: 2005Q1

REPORT INFORMATION
  Report Type: 
  Country: None (occurrence: None)
  Receive Date: 20050329
  Receipt Date: 20050323
  Transmission Date: 20050727
  Serious: Yes (Hospitalization, Other)
  Sender: FDA-Public Use
  Company Number: 2005044066

PATIENT
  Age: 62 Year
  Sex: Male

DRUGS (2)
  1. LIPITOR [Suspect]
     Indication: HYPERLIPIDAEMIA
     Dosage: 20 MG (1 IN 1 D); ORAL
     Route: 048
     Dates: start: 20030308, end: 20050223
  2. BEZAFIBRATE (BEZAFIBRATE) [Suspect]
     Indication: BLOOD TRIGLYCERIDES INCREASED
     Dosage: 400 MG (1 IN 1 D); ORAL
     Route: 048
     Dates: start: 20030503, end: 20050223

REACTIONS (5)
  - BLOOD TRIGLYCERIDES INCREASED [None]
  - BUTTOCK PAIN [None]
  - LOCALISED OEDEMA [None]
  - RENAL FAILURE ACUTE [None]
  - RHABDOMYOLYSIS [None]
